FAERS Safety Report 9274455 (Version 2)
Quarter: 2013Q2

REPORT INFORMATION
  Report Type: Spontaneous
  Country: US (occurrence: US)
  Receive Date: 20130507
  Receipt Date: 20130522
  Transmission Date: 20140414
  Serious: Yes (Other)
  Sender: FDA-Public Use
  Company Number: US-009507513-1305USA000737

PATIENT
  Age: 17 Year
  Sex: Female
  Weight: 81.63 kg

DRUGS (2)
  1. IMPLANON [Suspect]
     Indication: CONTRACEPTION
     Dosage: 1 ROD EVERY 3 YEARS
     Route: 059
     Dates: start: 20120308
  2. IMPLANON [Suspect]
     Indication: MENSTRUAL CYCLE MANAGEMENT

REACTIONS (8)
  - Suicide attempt [Unknown]
  - Menstruation irregular [Unknown]
  - Weight increased [Unknown]
  - Fatigue [Unknown]
  - Device dislocation [Unknown]
  - Mood swings [Unknown]
  - Device difficult to use [Unknown]
  - Implant site pain [Unknown]
